FAERS Safety Report 21708073 (Version 1)
Quarter: 2022Q4

REPORT INFORMATION
  Report Type: Spontaneous
  Country: JP (occurrence: JP)
  Receive Date: 20221209
  Receipt Date: 20221209
  Transmission Date: 20230112
  Serious: Yes (Hospitalization)
  Sender: FDA-Public Use
  Company Number: JP-ALLERGAN-2240220US

PATIENT
  Sex: Male

DRUGS (2)
  1. ASENAPINE MALEATE [Suspect]
     Active Substance: ASENAPINE MALEATE
     Indication: Restlessness
     Dosage: 10 MG
     Route: 060
  2. QUETIAPINE [Suspect]
     Active Substance: QUETIAPINE
     Indication: Delirium
     Route: 048

REACTIONS (3)
  - Pneumonia aspiration [Recovering/Resolving]
  - Parkinsonism [Recovering/Resolving]
  - Off label use [Unknown]
